FAERS Safety Report 6095902-7 (Version None)
Quarter: 2009Q1

REPORT INFORMATION
  Report Type: 
  Country: None (occurrence: None)
  Receive Date: 20090227
  Receipt Date: 20080711
  Transmission Date: 20090719
  Serious: No
  Sender: FDA-Public Use
  Company Number: A0737240A

PATIENT
  Age: 92 Year
  Sex: Female

DRUGS (11)
  1. LAMICTAL [Suspect]
     Dosage: 50MG TWICE PER DAY
     Route: 048
     Dates: start: 20080219
  2. PREDNISONE [Concomitant]
  3. RISPERDAL [Concomitant]
  4. LEVOTHYROXINE SODIUM [Concomitant]
  5. ALLOPURINOL [Concomitant]
  6. COUMADIN [Concomitant]
  7. NAMENDA [Concomitant]
  8. MECLIZINE [Concomitant]
  9. ARICEPT [Concomitant]
  10. MIDODRINE [Concomitant]
  11. LASIX [Concomitant]

REACTIONS (1)
  - DYSKINESIA [None]
